FAERS Safety Report 4480598-8 (Version None)
Quarter: 2004Q4

REPORT INFORMATION
  Report Type: 
  Country: None (occurrence: None)
  Receive Date: 20041019
  Receipt Date: 20041006
  Transmission Date: 20050328
  Serious: Yes (Other)
  Sender: FDA-Public Use
  Company Number: 2004237234JP

PATIENT
  Age: 63 Year
  Sex: Male

DRUGS (3)
  1. CYTOTEC [Suspect]
     Indication: SPONDYLOSIS
     Dosage: 1 DF, TID, ORAL
     Route: 048
     Dates: start: 20040816, end: 20041004
  2. PEON (ZALTOPROFEN) [Concomitant]
  3. METHYCOBAL (MECOBALAMIN) [Concomitant]

REACTIONS (1)
  - ANOSMIA [None]
